FAERS Safety Report 17662476 (Version 2)
Quarter: 2020Q2

REPORT INFORMATION
  Report Type: Report from Study
  Country: None (occurrence: US)
  Receive Date: 20200413
  Receipt Date: 20200522
  Transmission Date: 20200713
  Serious: Yes (Other)
  Sender: FDA-Public Use
  Company Number: US-ABBVIE-20K-163-3361752-00

PATIENT
  Age: 71 Year
  Sex: Female
  Weight: 80.81 kg

DRUGS (3)
  1. HUMIRA [Suspect]
     Active Substance: ADALIMUMAB
     Indication: PSORIATIC ARTHROPATHY
     Route: 058
  2. LOSARTAN. [Concomitant]
     Active Substance: LOSARTAN
     Indication: HYPERTENSION
  3. HUMIRA [Suspect]
     Active Substance: ADALIMUMAB
     Indication: PSORIASIS

REACTIONS (7)
  - Oral mucosal blistering [Unknown]
  - Anaphylactic shock [Recovered/Resolved]
  - Swollen tongue [Unknown]
  - Hypopnoea [Unknown]
  - Eye swelling [Unknown]
  - Paraesthesia oral [Unknown]
  - Lip swelling [Unknown]

NARRATIVE: CASE EVENT DATE: 20200109
